FAERS Safety Report 9038566 (Version 2)
Quarter: 2013Q1

REPORT INFORMATION
  Report Type: Report from Study
  Country: GB (occurrence: GB)
  Receive Date: 20130129
  Receipt Date: 20130325
  Transmission Date: 20140127
  Serious: Yes (Life-Threatening, Hospitalization)
  Sender: FDA-Public Use
  Company Number: GB-AMGEN-GBRCT2013005856

PATIENT
  Age: 67 Year
  Sex: Female
  Weight: 60 kg

DRUGS (4)
  1. ETANERCEPT [Suspect]
     Indication: RHEUMATOID ARTHRITIS
     Dosage: 25 MG, 2 TIMES/WK
     Dates: start: 20040824, end: 20120730
  2. NAPROXEN [Concomitant]
     Dosage: UNK
  3. OMEPRAZOLE [Concomitant]
     Dosage: UNK
  4. AMITRIPTYLINE [Concomitant]
     Dosage: UNK

REACTIONS (1)
  - Acute myocardial infarction [Unknown]
